FAERS Safety Report 7739605-9 (Version None)
Quarter: 2011Q3

REPORT INFORMATION
  Report Type: 
  Country: None (occurrence: None)
  Receive Date: 20110909
  Receipt Date: 20110901
  Transmission Date: 20111222
  Serious: No
  Sender: FDA-Public Use
  Company Number: US-PFIZER INC-2011207525

PATIENT
  Sex: Male
  Weight: 93 kg

DRUGS (1)
  1. TESTOSTERONE CYPIONATE [Suspect]
     Indication: BLOOD TESTOSTERONE DECREASED
     Dosage: UNK
     Dates: start: 20100101, end: 20101101

REACTIONS (4)
  - ASTHENIA [None]
  - FEELING ABNORMAL [None]
  - DRUG INEFFECTIVE [None]
  - ERECTILE DYSFUNCTION [None]
